FAERS Safety Report 6447376-1 (Version None)
Quarter: 2009Q4

REPORT INFORMATION
  Report Type: 
  Country: None (occurrence: None)
  Receive Date: 20091119
  Receipt Date: 20091112
  Transmission Date: 20100525
  Serious: Yes (Life-Threatening, Hospitalization)
  Sender: FDA-Public Use
  Company Number: NZ-ELI_LILLY_AND_COMPANY-NZ200910000965

PATIENT
  Sex: Female

DRUGS (7)
  1. HUMALOG MIX 75/25 [Suspect]
     Indication: LATENT AUTOIMMUNE DIABETES IN ADULTS
     Dosage: 38 IU, 2/D
     Route: 058
     Dates: end: 20090901
  2. HUMALOG MIX 75/25 [Suspect]
     Dosage: 38 IU, 2/D
     Dates: start: 20090901
  3. HUMALOG [Suspect]
     Indication: LATENT AUTOIMMUNE DIABETES IN ADULTS
     Dosage: 38 IU, DAILY (1/D)
     Route: 058
     Dates: start: 20090909, end: 20090910
  4. METOPROLOL [Concomitant]
     Indication: HYPERTENSION
     Dosage: 23.75 MG, DAILY (1/D)
     Route: 065
  5. CILAZAPRIL [Concomitant]
     Indication: HYPERTENSION
     Dosage: 2.5 MG, DAILY (1/D)
     Route: 065
  6. LIPEX [Concomitant]
     Indication: HYPERCHOLESTEROLAEMIA
     Dosage: 40 MG, DAILY (1/D)
     Route: 065
  7. ENOXAPARIN SODIUM [Concomitant]
     Dosage: 40 MG, DAILY (1/D)
     Route: 058
     Dates: start: 20090909, end: 20090911

REACTIONS (6)
  - DIABETIC KETOACIDOSIS [None]
  - DRUG DOSE OMISSION [None]
  - DRUG PRESCRIBING ERROR [None]
  - HYPERGLYCAEMIA [None]
  - HYPOGLYCAEMIA [None]
  - WRONG DRUG ADMINISTERED [None]
